FAERS Safety Report 22366771 (Version 1)
Quarter: 2023Q2

REPORT INFORMATION
  Report Type: Spontaneous
  Country: US (occurrence: None)
  Receive Date: 20230524
  Receipt Date: 20230524
  Transmission Date: 20230721
  Serious: Yes (Hospitalization)
  Sender: FDA-Public Use
  Company Number: None

PATIENT
  Age: 60 Year
  Sex: Female
  Weight: 93.5 kg

DRUGS (2)
  1. IRON SUCROSE [Suspect]
     Active Substance: IRON SUCROSE
     Indication: Microcytic anaemia
     Dosage: FREQUENCY : ONCE;?
     Route: 042
     Dates: start: 20230523, end: 20230523
  2. IRON SUCROSE [Suspect]
     Active Substance: IRON SUCROSE
     Indication: Thalassaemia beta

REACTIONS (2)
  - Pruritus [None]
  - Pharyngeal swelling [None]

NARRATIVE: CASE EVENT DATE: 20230523
